FAERS Safety Report 17079457 (Version 3)
Quarter: 2021Q2

REPORT INFORMATION
  Report Type: Spontaneous
  Country: US (occurrence: US)
  Receive Date: 20191127
  Receipt Date: 20210513
  Transmission Date: 20210716
  Serious: No
  Sender: FDA-Public Use
  Company Number: US-UCBSA-2019019361

PATIENT
  Age: 51 Year
  Sex: Female

DRUGS (1)
  1. CIMZIA [Suspect]
     Active Substance: CERTOLIZUMAB PEGOL
     Indication: CROHN^S DISEASE
     Dosage: 400 MG, MONTHLY (QM)
     Dates: start: 20180824, end: 20191201

REACTIONS (5)
  - Rash [Recovered/Resolved]
  - Herpes zoster [Not Recovered/Not Resolved]
  - Syringe issue [Unknown]
  - Pruritus [Recovered/Resolved]
  - Aphonia [Recovered/Resolved]

NARRATIVE: CASE EVENT DATE: 20190429
